FAERS Safety Report 22056015 (Version 1)
Quarter: 2023Q1

REPORT INFORMATION
  Report Type: Spontaneous
  Country: DE (occurrence: DE)
  Receive Date: 20230302
  Receipt Date: 20230302
  Transmission Date: 20230417
  Serious: Yes (Hospitalization)
  Sender: FDA-Public Use
  Company Number: DE-VERTEX PHARMACEUTICALS-2023-002838

PATIENT
  Sex: Female

DRUGS (3)
  1. ELEXACAFTOR\IVACAFTOR\TEZACAFTOR [Suspect]
     Active Substance: ELEXACAFTOR\IVACAFTOR\TEZACAFTOR
     Indication: Cystic fibrosis
     Dosage: TWO ORANGE TABLETS AM AND ONE BLUE TABLET PM
     Route: 048
     Dates: start: 20201002, end: 202010
  2. ELEXACAFTOR\IVACAFTOR\TEZACAFTOR [Suspect]
     Active Substance: ELEXACAFTOR\IVACAFTOR\TEZACAFTOR
     Dosage: SLOWLY STARTED TO TAPER UP THE DOSE
     Route: 048
     Dates: start: 202010, end: 202012
  3. ELEXACAFTOR\IVACAFTOR\TEZACAFTOR [Suspect]
     Active Substance: ELEXACAFTOR\IVACAFTOR\TEZACAFTOR
     Dosage: TWO ORANGE TABLETS AM AND ONE BLUE TABLET PM
     Route: 048
     Dates: start: 202012

REACTIONS (10)
  - Rash erythematous [Recovered/Resolved]
  - Rash pruritic [Recovered/Resolved]
  - Secretion discharge [Recovering/Resolving]
  - Pulmonary haemorrhage [Unknown]
  - Pulmonary function test decreased [Recovering/Resolving]
  - Depressed mood [Unknown]
  - Post-traumatic stress disorder [Unknown]
  - Weight increased [Unknown]
  - Skin disorder [Unknown]
  - Skin odour abnormal [Unknown]

NARRATIVE: CASE EVENT DATE: 20200101
